FAERS Safety Report 6111429 (Version 2)
Quarter: 2013Q4

REPORT INFORMATION
  Report Type: Spontaneous
  Country: GB (occurrence: GB)
  Receive Date: 20060821
  Receipt Date: 20131014
  Transmission Date: 20140711
  Serious: Yes (Hospitalization)
  Sender: FDA-Public Use
  Company Number: GB-GLAXOSMITHKLINE-B0434703A

PATIENT
  Age: 17 Year
  Sex: Female
  Weight: 33 kg

DRUGS (20)
  1. CEFTAZIDIME [Suspect]
     Indication: PRODUCT USED FOR UNKNOWN INDICATION
     Dosage: 6MEQ PER DAY
     Route: 042
  2. AMBISOME [Suspect]
     Indication: PRODUCT USED FOR UNKNOWN INDICATION
     Route: 065
  3. AMIKACIN [Suspect]
     Indication: PRODUCT USED FOR UNKNOWN INDICATION
     Route: 065
  4. TACROLIMUS [Suspect]
     Indication: PRODUCT USED FOR UNKNOWN INDICATION
     Dosage: 4MG PER DAY
     Route: 065
  5. ATROVENT [Concomitant]
     Route: 055
  6. CO-TRIMOXAZOLE [Concomitant]
     Dosage: 480MG TWICE PER DAY
  7. CREON [Concomitant]
  8. IRON SULPHATE [Concomitant]
     Dosage: 200MG THREE TIMES PER DAY
  9. MAGNESIUM GLYCEROPHOSPHATE [Concomitant]
     Dosage: 1U PER DAY
  10. MICROGYNON [Concomitant]
     Dosage: 30MG PER DAY
  11. MIXTARD [Concomitant]
  12. MULTIVITAMIN [Concomitant]
  13. MYCOPHENOLATE MOFETIL [Concomitant]
     Dosage: 500MG TWICE PER DAY
  14. PARACETAMOL [Concomitant]
  15. PRAVASTATIN [Concomitant]
     Dosage: 100MG PER DAY
  16. SALBUTAMOL [Concomitant]
     Route: 055
  17. VALACICLOVIR [Concomitant]
     Dosage: 500MG THREE TIMES PER DAY
  18. VITAMIN K [Concomitant]
     Dosage: 10MG PER DAY
  19. VORICONAZOLE [Concomitant]
     Dosage: 200MG TWICE PER DAY
  20. ZITHROMAX [Concomitant]
     Dosage: 500MG THREE TIMES PER DAY

REACTIONS (1)
  - Renal failure acute [Recovering/Resolving]
